FAERS Safety Report 5767815-9 (Version None)
Quarter: 2008Q2

REPORT INFORMATION
  Report Type: 
  Country: None (occurrence: None)
  Receive Date: 20080612
  Receipt Date: 20080529
  Transmission Date: 20081010
  Serious: Yes (Other)
  Sender: FDA-Public Use
  Company Number: PHHY2008ES09211

PATIENT

DRUGS (3)
  1. SANDIMMUNE [Suspect]
     Indication: PSORIASIS
     Dosage: 250 MG, QD
     Route: 048
     Dates: start: 20070619, end: 20071128
  2. CEMIDON [Suspect]
     Indication: ANTIBIOTIC PROPHYLAXIS
     Dosage: UNK
     Route: 048
     Dates: start: 20070619, end: 20071224
  3. REMICADE [Suspect]
     Indication: PSORIASIS
     Dosage: 410 MG, QD
     Route: 042
     Dates: start: 20070924, end: 20071105

REACTIONS (1)
  - HEPATITIS [None]
